FAERS Safety Report 22538833 (Version 10)
Quarter: 2024Q2

REPORT INFORMATION
  Report Type: Report from Study
  Country: US (occurrence: US)
  Receive Date: 20230609
  Receipt Date: 20240612
  Transmission Date: 20240716
  Serious: Yes (Other)
  Sender: FDA-Public Use
  Company Number: US-ABBVIE-5281371

PATIENT
  Sex: Female

DRUGS (5)
  1. IMBRUVICA [Suspect]
     Active Substance: IBRUTINIB
     Indication: Waldenstrom^s macroglobulinaemia
     Route: 048
     Dates: start: 20230329
  2. IMBRUVICA [Suspect]
     Active Substance: IBRUTINIB
     Indication: Waldenstrom^s macroglobulinaemia
     Dosage: DECREASED DOSE TO ONCE WEEKLY
     Route: 048
  3. LANTUS [Concomitant]
     Active Substance: INSULIN GLARGINE
     Indication: Type 2 diabetes mellitus
  4. CILOSTAZOL [Concomitant]
     Active Substance: CILOSTAZOL
     Indication: Product used for unknown indication
  5. HUMALOG [Concomitant]
     Active Substance: INSULIN LISPRO
     Indication: Type 2 diabetes mellitus

REACTIONS (22)
  - Device dislocation [Unknown]
  - Vascular rupture [Unknown]
  - Pain [Unknown]
  - Dry eye [Unknown]
  - Blood immunoglobulin M increased [Unknown]
  - Renal mass [Unknown]
  - Dry skin [Recovering/Resolving]
  - Off label use [Unknown]
  - Respiratory tract congestion [Unknown]
  - Nasopharyngitis [Recovering/Resolving]
  - Fatigue [Unknown]
  - Hypotension [Unknown]
  - Contusion [Not Recovered/Not Resolved]
  - Vision blurred [Unknown]
  - Herpes zoster [Recovering/Resolving]
  - Vomiting [Unknown]
  - Dizziness [Not Recovered/Not Resolved]
  - Nervous system disorder [Unknown]
  - Fall [Recovering/Resolving]
  - Peritonitis [Unknown]
  - Nausea [Not Recovered/Not Resolved]
  - Blood glucose decreased [Unknown]

NARRATIVE: CASE EVENT DATE: 20230101
